FAERS Safety Report 9709901 (Version 1)
Quarter: 2013Q4

REPORT INFORMATION
  Report Type: Spontaneous
  Country: US (occurrence: US)
  Receive Date: 20131126
  Receipt Date: 20131126
  Transmission Date: 20140711
  Serious: No
  Sender: FDA-Public Use
  Company Number: US-PFIZER INC-2013334694

PATIENT
  Sex: Male

DRUGS (1)
  1. ALAVERT D-12 HOUR ALLERGY + SINUS [Suspect]
     Dosage: UNK

REACTIONS (2)
  - Blood pressure abnormal [Unknown]
  - Condition aggravated [Unknown]
